FAERS Safety Report 23634510 (Version 2)
Quarter: 2024Q2

REPORT INFORMATION
  Report Type: Report from Study
  Country: US (occurrence: US)
  Receive Date: 20240315
  Receipt Date: 20240608
  Transmission Date: 20240716
  Serious: Yes (Hospitalization, Other)
  Sender: FDA-Public Use
  Company Number: US-ABBVIE-5676614

PATIENT
  Sex: Male

DRUGS (2)
  1. SKYRIZI [Suspect]
     Active Substance: RISANKIZUMAB-RZAA
     Indication: Psoriasis
     Dosage: LAST ADMIN DATE WAS 2024
     Route: 058
     Dates: start: 20240328
  2. SKYRIZI [Suspect]
     Active Substance: RISANKIZUMAB-RZAA
     Route: 058
     Dates: start: 20230425

REACTIONS (4)
  - Nephrolithiasis [Not Recovered/Not Resolved]
  - Dry skin [Recovering/Resolving]
  - Cardiac disorder [Recovering/Resolving]
  - Gallbladder disorder [Recovering/Resolving]
